FAERS Safety Report 22399105 (Version 1)
Quarter: 2023Q2

REPORT INFORMATION
  Report Type: Spontaneous
  Country: US (occurrence: US)
  Receive Date: 20230602
  Receipt Date: 20230602
  Transmission Date: 20230721
  Serious: Yes (Life-Threatening, Hospitalization, Other)
  Sender: FDA-Public Use
  Company Number: US-BRACCO-2023US02498

PATIENT
  Age: 54 Year
  Sex: Male

DRUGS (10)
  1. LUMASON [Suspect]
     Active Substance: SULFUR HEXAFLUORIDE
     Indication: Echocardiogram
     Dosage: 1 ML, SINGLE
     Route: 042
     Dates: start: 20230518, end: 20230518
  2. LUMASON [Suspect]
     Active Substance: SULFUR HEXAFLUORIDE
     Indication: Echocardiogram
     Dosage: 1 ML, SINGLE
     Route: 042
     Dates: start: 20230518, end: 20230518
  3. LUMASON [Suspect]
     Active Substance: SULFUR HEXAFLUORIDE
     Indication: Echocardiogram
     Dosage: 1 ML, SINGLE
     Route: 042
     Dates: start: 20230518, end: 20230518
  4. ELIQUIS [Concomitant]
     Active Substance: APIXABAN
  5. NITROGLYCERIN [Concomitant]
     Active Substance: NITROGLYCERIN
  6. METOPROLOL [Concomitant]
     Active Substance: METOPROLOL
  7. JARDIANCE [Concomitant]
     Active Substance: EMPAGLIFLOZIN
  8. LIPITOR [Concomitant]
     Active Substance: ATORVASTATIN CALCIUM
  9. PLAVIX [Concomitant]
     Active Substance: CLOPIDOGREL BISULFATE
  10. ASPIRIN [Concomitant]
     Active Substance: ASPIRIN

REACTIONS (4)
  - Cardiac arrest [Recovered/Resolved]
  - Unresponsive to stimuli [Recovered/Resolved]
  - Pulseless electrical activity [Recovered/Resolved]
  - Nausea [Recovered/Resolved]

NARRATIVE: CASE EVENT DATE: 20230518
